FAERS Safety Report 7471885-X (Version None)
Quarter: 2011Q2

REPORT INFORMATION
  Report Type: 
  Country: None (occurrence: None)
  Receive Date: 20110511
  Receipt Date: 20100616
  Transmission Date: 20111010
  Serious: No
  Sender: FDA-Public Use
  Company Number: A0867692A

PATIENT
  Age: 54 Year
  Sex: Female
  Weight: 70 kg

DRUGS (2)
  1. HERCEPTIN [Suspect]
     Route: 065
  2. TYKERB [Suspect]
     Dosage: 1000MG PER DAY
     Route: 048
     Dates: start: 20100606

REACTIONS (9)
  - DECREASED APPETITE [None]
  - WEIGHT DECREASED [None]
  - DEHYDRATION [None]
  - FREQUENT BOWEL MOVEMENTS [None]
  - VOMITING [None]
  - RASH [None]
  - NAUSEA [None]
  - MALAISE [None]
  - MILIA [None]
